FAERS Safety Report 18345405 (Version 2)
Quarter: 2022Q2

REPORT INFORMATION
  Report Type: Report from Study
  Country: FR (occurrence: FR)
  Receive Date: 20201005
  Receipt Date: 20220506
  Transmission Date: 20220721
  Serious: Yes (Hospitalization)
  Sender: FDA-Public Use
  Company Number: FR-SA-2020SA268148

PATIENT
  Age: 72 Year
  Sex: Male
  Weight: 59 kg

DRUGS (21)
  1. ISATUXIMAB [Suspect]
     Active Substance: ISATUXIMAB
     Indication: Plasma cell myeloma
     Dosage: 10 MG/KG, QOW
     Route: 042
     Dates: start: 20200417, end: 20200417
  2. ISATUXIMAB [Suspect]
     Active Substance: ISATUXIMAB
     Dosage: 10 MG/KG, QW
     Route: 042
     Dates: start: 20180504, end: 20180504
  3. BORTEZOMIB [Suspect]
     Active Substance: BORTEZOMIB
     Indication: Plasma cell myeloma
     Dosage: 1.3 MG/M2, OTHER
     Route: 058
  4. BORTEZOMIB [Suspect]
     Active Substance: BORTEZOMIB
     Dosage: 1.3 MG/M2, OTHER DAYS 1, 4, 8, 11, 22, 25, 29, AND 32
     Route: 058
     Dates: start: 20180504, end: 20180504
  5. LENALIDOMIDE [Suspect]
     Active Substance: LENALIDOMIDE
     Indication: Plasma cell myeloma
     Dosage: 15 MG, QD
     Route: 048
     Dates: start: 20200417, end: 20200507
  6. LENALIDOMIDE [Suspect]
     Active Substance: LENALIDOMIDE
     Dosage: 10 MG, QD
     Route: 048
     Dates: start: 20180504, end: 20180510
  7. DEXAMETHASONE [Suspect]
     Active Substance: DEXAMETHASONE
     Indication: Plasma cell myeloma
     Dosage: 20 MG, QOW
     Route: 065
  8. DEXAMETHASONE [Suspect]
     Active Substance: DEXAMETHASONE
     Dosage: 20 MG, QW
     Route: 042
     Dates: start: 20180504, end: 20180504
  9. PANTOPRAZOLE [Concomitant]
     Active Substance: PANTOPRAZOLE
     Indication: Prophylaxis
     Dosage: 20 MG, 1X
     Route: 048
     Dates: start: 20200417, end: 20200417
  10. POLARAMINE [Concomitant]
     Active Substance: DEXCHLORPHENIRAMINE MALEATE
     Indication: Prophylaxis
     Dosage: 5 MG, 1X
     Route: 042
     Dates: start: 20200417, end: 20200417
  11. ACETAMINOPHEN [Concomitant]
     Active Substance: ACETAMINOPHEN
     Indication: Prophylaxis
     Dosage: 1000 MG, 1X
     Route: 042
     Dates: start: 20200417, end: 20200417
  12. DEXAMETHASONE [Concomitant]
     Active Substance: DEXAMETHASONE
     Indication: Prophylaxis
     Dosage: 4 MG, 1X
     Route: 042
     Dates: start: 20200417, end: 20200417
  13. MORPHINE SULFATE [Concomitant]
     Active Substance: MORPHINE SULFATE
     Dosage: UNK
     Route: 048
     Dates: start: 201803
  14. MOVICOL [Concomitant]
     Active Substance: POLYETHYLENE GLYCOL 3350\POTASSIUM CHLORIDE\SODIUM BICARBONATE\SODIUM CHLORIDE
     Indication: Prophylaxis
     Dosage: UNK
     Route: 048
     Dates: start: 201804
  15. ALPRAZOLAM [Concomitant]
     Active Substance: ALPRAZOLAM
     Indication: Prophylaxis
     Dosage: UNK
     Route: 048
     Dates: start: 201804
  16. VALACYCLOVIR HYDROCHLORIDE [Concomitant]
     Active Substance: VALACYCLOVIR HYDROCHLORIDE
     Indication: Prophylaxis
     Dosage: UNK
     Route: 048
     Dates: start: 20180504
  17. AMOXICILLIN [Concomitant]
     Active Substance: AMOXICILLIN
     Indication: Prophylaxis
     Dosage: UNK
     Route: 048
     Dates: start: 20180504, end: 20201230
  18. ZOPICLONE [Concomitant]
     Active Substance: ZOPICLONE
     Indication: Prophylaxis
     Dosage: UNK
     Route: 048
     Dates: start: 201804
  19. BACTRIM [Concomitant]
     Active Substance: SULFAMETHOXAZOLE\TRIMETHOPRIM
     Indication: Prophylaxis
     Dosage: UNK
     Route: 048
     Dates: start: 20190517
  20. ASPIRIN [Concomitant]
     Active Substance: ASPIRIN
     Indication: Prophylaxis
     Dosage: UNK
     Route: 048
     Dates: start: 20181005, end: 20200422
  21. DEXAMETHASONE SODIUM PHOSPHATE\NYSTATIN\OXYTETRACYCLINE\POLYMYXIN B SU [Concomitant]
     Active Substance: DEXAMETHASONE SODIUM PHOSPHATE\NYSTATIN\OXYTETRACYCLINE\POLYMYXIN B SULFATE
     Dosage: UNK
     Route: 062
     Dates: start: 20190702

REACTIONS (1)
  - Atrial fibrillation [Recovered/Resolved]

NARRATIVE: CASE EVENT DATE: 20200419
